FAERS Safety Report 8281541-6 (Version None)
Quarter: 2012Q2

REPORT INFORMATION
  Report Type: 
  Country: None (occurrence: None)
  Receive Date: 20120413
  Receipt Date: 20120406
  Transmission Date: 20120825
  Serious: Yes (Other)
  Sender: FDA-Public Use
  Company Number: US-CELGENEUS-163-21880-12033258

PATIENT
  Sex: Female

DRUGS (6)
  1. SENNA [Concomitant]
     Indication: MUSCLE SPASMS
     Route: 065
     Dates: start: 20111220
  2. REVLIMID [Suspect]
     Dosage: 15 MILLIGRAM
     Route: 048
     Dates: start: 20110824
  3. REVLIMID [Suspect]
     Dosage: 15 MILLIGRAM
     Route: 048
     Dates: start: 20101201
  4. REVLIMID [Suspect]
     Indication: MULTIPLE MYELOMA
     Dosage: 25 MILLIGRAM
     Route: 048
     Dates: start: 20100401
  5. DECADRON [Concomitant]
     Route: 065
     Dates: start: 20110824
  6. REVLIMID [Suspect]
     Dosage: 15MG-10MG-5MG
     Route: 048
     Dates: start: 20100601

REACTIONS (3)
  - NIGHT SWEATS [None]
  - TOOTH DISORDER [None]
  - HAEMORRHAGE [None]
